FAERS Safety Report 4457202-8 (Version None)
Quarter: 2004Q3

REPORT INFORMATION
  Report Type: 
  Country: None (occurrence: None)
  Receive Date: 20040922
  Receipt Date: 20040909
  Transmission Date: 20050211
  Serious: Yes (Hospitalization, Other)
  Sender: FDA-Public Use
  Company Number: USA-2003-0009007

PATIENT
  Age: 47 Year
  Sex: Male
  Weight: 93 kg

DRUGS (21)
  1. OXYCONTIN [Suspect]
     Indication: PAIN
     Dosage: SEE TEXT
     Dates: start: 19971129
  2. OXYCODONE HCL [Concomitant]
  3. THEO-DUR [Concomitant]
  4. PAXIL [Concomitant]
  5. PREDNISONE [Concomitant]
  6. AUGMENTIN '125' [Concomitant]
  7. NAPROXEN [Concomitant]
  8. CLARITIN [Concomitant]
  9. GABAPENTIN [Concomitant]
  10. THEO-DUR [Concomitant]
  11. PAXIL [Concomitant]
  12. AMARYL [Concomitant]
  13. LASIX [Concomitant]
  14. AMITRIPTYLINE HCL [Concomitant]
  15. LIPITOR [Concomitant]
  16. ACCUPRIL [Concomitant]
  17. BETOTOPIC-2 [Concomitant]
  18. XALATAN [Concomitant]
  19. FOSAMAX [Concomitant]
  20. MYLANTA (SIMETICONE, ALUMINIUM HYDROXIDE GEL, DRIED, MAGNESIUM HYDROXI [Concomitant]
  21. VALIUM [Concomitant]

REACTIONS (48)
  - ABDOMINAL PAIN [None]
  - ANAEMIA POSTOPERATIVE [None]
  - ANGIOPATHY [None]
  - ARTHRALGIA [None]
  - ASTHENIA [None]
  - BACK PAIN [None]
  - BLINDNESS [None]
  - BUTTOCK PAIN [None]
  - CELLULITIS [None]
  - CHEST DISCOMFORT [None]
  - CHILLS [None]
  - CONFUSIONAL STATE [None]
  - COUGH [None]
  - DECREASED APPETITE [None]
  - DEPRESSION [None]
  - DIARRHOEA [None]
  - DIZZINESS [None]
  - DRUG ABUSER [None]
  - DRUG DEPENDENCE [None]
  - DRUG INEFFECTIVE [None]
  - DRUG WITHDRAWAL SYNDROME [None]
  - DYSPNOEA [None]
  - EMOTIONAL DISTRESS [None]
  - ERECTILE DYSFUNCTION [None]
  - FATIGUE [None]
  - FEELING JITTERY [None]
  - HYPERHIDROSIS [None]
  - HYPOAESTHESIA [None]
  - ILEUS PARALYTIC [None]
  - IMPAIRED HEALING [None]
  - INSOMNIA [None]
  - INTERVERTEBRAL DISC DISORDER [None]
  - IRRITABILITY [None]
  - LOCALISED INFECTION [None]
  - NAUSEA [None]
  - NECK PAIN [None]
  - NERVOUSNESS [None]
  - OEDEMA PERIPHERAL [None]
  - OVERDOSE [None]
  - PAIN [None]
  - PYREXIA [None]
  - SKIN ULCER [None]
  - THROMBOPHLEBITIS [None]
  - TOOTHACHE [None]
  - TREMOR [None]
  - UPPER RESPIRATORY TRACT INFECTION [None]
  - VOMITING [None]
  - WHEEZING [None]
